FAERS Safety Report 9496778 (Version 3)
Quarter: 2013Q3

REPORT INFORMATION
  Report Type: Spontaneous
  Country: RU (occurrence: RU)
  Receive Date: 20130904
  Receipt Date: 20130918
  Transmission Date: 20140515
  Serious: Yes (Death, Hospitalization, Other)
  Sender: FDA-Public Use
  Company Number: RU-PFIZER INC-2013252716

PATIENT
  Age: 60 Year
  Sex: Female

DRUGS (3)
  1. SUTENT [Suspect]
     Indication: RENAL CELL CARCINOMA
     Dosage: 50 MG 1X/DAY FOR 4 WEEKS FOLLOWED BY 2 WEEKS OFF, CYCLIC
     Route: 048
     Dates: start: 200801, end: 2008
  2. SUTENT [Suspect]
     Dosage: 37.5 MG, CYCLIC, 1 X/DAY FOR 4 WEEKS FOLLOWED BY 2 WEEKS OFF
     Route: 048
     Dates: start: 2008, end: 200805
  3. SUTENT [Suspect]
     Dosage: 50 MG 1X/DAY FOR 4 WEEKS FOLLOWED BY 2 WEEKS OFF, CYCLIC
     Route: 048
     Dates: start: 200908

REACTIONS (6)
  - Disease progression [Fatal]
  - Renal cell carcinoma [Fatal]
  - Malignant hypertension [Not Recovered/Not Resolved]
  - Diarrhoea [Not Recovered/Not Resolved]
  - Palmar-plantar erythrodysaesthesia syndrome [Not Recovered/Not Resolved]
  - Leukopenia [Not Recovered/Not Resolved]
